FAERS Safety Report 9546915 (Version 1)
Quarter: 2013Q2

REPORT INFORMATION
  Report Type: Spontaneous
  Country: US (occurrence: None)
  Receive Date: 20130524
  Receipt Date: 20130524
  Transmission Date: 20140414
  Serious: Yes (Other)
  Sender: FDA-Public Use
  Company Number: PHEH2012US024547

PATIENT
  Sex: 0

DRUGS (5)
  1. GILENYA (FINGOLIMOD) CAPSULE [Suspect]
     Indication: MULTIPLE SCLEROSIS
     Dosage: 1 DF ,  UNK , ORAL
     Route: 048
  2. COPAXONE [Suspect]
     Indication: MULTIPLE SCLEROSIS
  3. AVONEX (INTERFERON BETA-1A) [Suspect]
     Indication: MULTIPLE SCLEROSIS
  4. BETASERON [Suspect]
     Indication: MULTIPLE SCLEROSIS
  5. REBIF (INTERFERON BETA-1A) [Suspect]
     Indication: MULTIPLE SCLEROSIS

REACTIONS (1)
  - Multiple sclerosis relapse [None]
